FAERS Safety Report 7278070-5 (Version None)
Quarter: 2011Q1

REPORT INFORMATION
  Report Type: 
  Country: None (occurrence: None)
  Receive Date: 20110207
  Receipt Date: 20110126
  Transmission Date: 20110831
  Serious: Yes (Death, Life-Threatening, Hospitalization)
  Sender: FDA-Public Use
  Company Number: JP-BAYER-200914712BYL

PATIENT
  Sex: Female
  Weight: 69.5 kg

DRUGS (6)
  1. OMEPRAL [Concomitant]
     Indication: REFLUX OESOPHAGITIS
     Dosage: 20 MG (DAILY DOSE), , ORAL
     Route: 048
  2. NEXAVAR [Suspect]
     Indication: HEPATIC NEOPLASM MALIGNANT
     Dosage: NO ADMINISTRATION AT MORNING 26-NOV-2009 AND MORNING 28-NOV-2009
     Route: 048
     Dates: start: 20091117, end: 20091130
  3. AMLODIPINE [Concomitant]
     Indication: HYPERTENSION
     Dosage: 5 MG (DAILY DOSE), , ORAL
     Route: 048
  4. BLOPRESS [Concomitant]
     Indication: HYPERTENSION
     Dosage: 8 MG (DAILY DOSE), , ORAL
     Route: 048
  5. FLUITRAN [Concomitant]
     Indication: HYPERTENSION
     Dosage: 2 MG (DAILY DOSE), , ORAL
     Route: 048
  6. BARACLUDE [Concomitant]
     Indication: HEPATIC CIRRHOSIS
     Dosage: 0.5 MG (DAILY DOSE), , ORAL
     Route: 048

REACTIONS (4)
  - BLOOD ALBUMIN DECREASED [None]
  - ERYTHEMA MULTIFORME [None]
  - HEPATIC FAILURE [None]
  - HYPOTHYROIDISM [None]
